FAERS Safety Report 6425897-5 (Version None)
Quarter: 2009Q4

REPORT INFORMATION
  Report Type: 
  Country: None (occurrence: None)
  Receive Date: 20091030
  Receipt Date: 20091016
  Transmission Date: 20100525
  Serious: Yes (Hospitalization)
  Sender: FDA-Public Use
  Company Number: 2009AC000269

PATIENT
  Age: 53 Year
  Sex: Female

DRUGS (14)
  1. DIGOXIN [Suspect]
     Dosage: 125 MG;QD;PO
     Route: 048
     Dates: start: 20040501
  2. LEVAQUIN [Concomitant]
  3. METOPROLOL [Concomitant]
  4. LASIX [Concomitant]
  5. SIMVASTATIN [Concomitant]
  6. MONOPRIL [Concomitant]
  7. FERROUS SULFATE TAB [Concomitant]
  8. SYNTHROID [Concomitant]
  9. HYZAAR [Concomitant]
  10. CLONIDINE [Concomitant]
  11. GEMFIBROZIL [Concomitant]
  12. AVANDIA [Concomitant]
  13. DYNACIRIC [Concomitant]
  14. LANTUS [Concomitant]

REACTIONS (8)
  - CATARACT CORTICAL [None]
  - ECONOMIC PROBLEM [None]
  - IRON DEFICIENCY ANAEMIA [None]
  - LOBAR PNEUMONIA [None]
  - MULTIPLE INJURIES [None]
  - OCCULT BLOOD POSITIVE [None]
  - SURGERY [None]
  - VISUAL ACUITY REDUCED [None]
